FAERS Safety Report 6919544-3 (Version None)
Quarter: 2010Q3

REPORT INFORMATION
  Report Type: 
  Country: None (occurrence: None)
  Receive Date: 20100810
  Receipt Date: 20100810
  Transmission Date: 20110219
  Serious: Yes (Other)
  Sender: FDA-Public Use
  Company Number: None

PATIENT
  Age: 54 Year
  Sex: Female
  Weight: 47.1741 kg

DRUGS (1)
  1. EVISTA [Suspect]
     Indication: OSTEOPOROSIS
     Dosage: 1 TABLET DAILY
     Dates: start: 20100620, end: 20100728

REACTIONS (5)
  - HOT FLUSH [None]
  - HYPERHIDROSIS [None]
  - MENSTRUAL DISORDER [None]
  - SURGERY [None]
  - VAGINAL HAEMORRHAGE [None]
